FAERS Safety Report 5647117-1 (Version None)
Quarter: 2008Q1

REPORT INFORMATION
  Report Type: 
  Country: None (occurrence: None)
  Receive Date: 20080228
  Receipt Date: 20080214
  Transmission Date: 20080703
  Serious: Yes (Hospitalization)
  Sender: FDA-Public Use
  Company Number: CIP08000225

PATIENT
  Age: 43 Year
  Sex: Female

DRUGS (5)
  1. ACTONEL [Suspect]
     Indication: METASTASES TO BONE
     Dosage: 2.5 MG DAILY, ORAL
     Route: 048
     Dates: start: 20031101, end: 20040415
  2. BISPHONAL(DISODIUM INCADRONATE) [Suspect]
     Indication: METASTASES TO BONE
     Dosage: 10 MG DAILY, IV NOS
     Route: 042
     Dates: start: 20030419, end: 20040713
  3. AREDIA [Suspect]
     Indication: METASTASES TO BONE
     Dosage: 45 MG DAILY, IV NOS; 90 MG DAILY, IV NOS
     Route: 042
     Dates: start: 20040812, end: 20040826
  4. AREDIA [Suspect]
     Indication: METASTASES TO BONE
     Dosage: 45 MG DAILY, IV NOS; 90 MG DAILY, IV NOS
     Route: 042
     Dates: start: 20041112, end: 20060620
  5. ZOMETA [Concomitant]

REACTIONS (6)
  - JAW DISORDER [None]
  - LOCAL SWELLING [None]
  - OSTEONECROSIS [None]
  - PAIN IN JAW [None]
  - PURULENT DISCHARGE [None]
  - TOOTH EXTRACTION [None]
